FAERS Safety Report 7966065-5 (Version None)
Quarter: 2011Q4

REPORT INFORMATION
  Report Type: 
  Country: None (occurrence: None)
  Receive Date: 20111208
  Receipt Date: 20111129
  Transmission Date: 20120403
  Serious: Yes (Other)
  Sender: FDA-Public Use
  Company Number: DE-ELI_LILLY_AND_COMPANY-DE201111008822

PATIENT
  Sex: Female

DRUGS (3)
  1. ANALGESICS [Concomitant]
     Dosage: UNK UNK, TID
  2. CORTISONE ACETATE [Concomitant]
  3. FORTEO [Suspect]
     Indication: OSTEOPOROSIS
     Dosage: UNK, QD
     Route: 058
     Dates: start: 20110524

REACTIONS (2)
  - PAIN [None]
  - PATHOLOGICAL FRACTURE [None]
